FAERS Safety Report 4387823-2 (Version None)
Quarter: 2004Q2

REPORT INFORMATION
  Report Type: 
  Country: None (occurrence: None)
  Receive Date: 20040630
  Receipt Date: 20040618
  Transmission Date: 20050107
  Serious: Yes (Other)
  Sender: FDA-Public Use
  Company Number: PHBS2004BR08214

PATIENT
  Age: 33 Year
  Sex: Female
  Weight: 68 kg

DRUGS (6)
  1. MELLARIL [Suspect]
     Indication: HEADACHE
     Dosage: 50 MG/D
     Route: 048
  2. MELLARIL [Suspect]
     Dosage: UNK, UNK
     Route: 048
  3. RIVOTRIL [Suspect]
     Indication: HEADACHE
     Dosage: 2 - 4 - 6 DRP/DAY
     Route: 048
  4. RIVOTRIL [Suspect]
     Dosage: UNK, UNK
     Route: 048
  5. TRYPTANOL [Suspect]
     Indication: HEADACHE
     Dosage: 25 - 25 - 50 MG/DAY
     Route: 048
  6. TRYPTANOL [Suspect]
     Dosage: UNK, UNK
     Route: 048

REACTIONS (4)
  - HUNGER [None]
  - SOMNOLENCE [None]
  - THIRST [None]
  - WEIGHT INCREASED [None]
